FAERS Safety Report 7279151-2 (Version None)
Quarter: 2011Q1

REPORT INFORMATION
  Report Type: 
  Country: None (occurrence: None)
  Receive Date: 20110207
  Receipt Date: 20110131
  Transmission Date: 20110831
  Serious: Yes (Disabling, Other)
  Sender: FDA-Public Use
  Company Number: CH-PFIZER INC-2011021494

PATIENT
  Age: 45 Year
  Sex: Male

DRUGS (1)
  1. EFFEXOR XR [Suspect]
     Indication: DEPRESSION
     Dosage: UNKNOWN DOSE, SLOWLY TAPERING OFF

REACTIONS (7)
  - INFLUENZA [None]
  - INTENTIONAL DRUG MISUSE [None]
  - TRIGEMINAL NEURALGIA [None]
  - GAIT DISTURBANCE [None]
  - DRUG WITHDRAWAL SYNDROME [None]
  - DEPERSONALISATION [None]
  - DIZZINESS [None]
